FAERS Safety Report 4416548-X (Version None)
Quarter: 2004Q3

REPORT INFORMATION
  Report Type: 
  Country: None (occurrence: None)
  Receive Date: 20040802
  Receipt Date: 20040721
  Transmission Date: 20050211
  Serious: Yes (Hospitalization)
  Sender: FDA-Public Use
  Company Number: K200401081

PATIENT
  Age: 47 Year
  Sex: Male

DRUGS (1)
  1. ALTACE [Suspect]
     Indication: ESSENTIAL HYPERTENSION
     Dosage: 5 MG, QD, ORAL
     Route: 048
     Dates: start: 20030501, end: 20030530

REACTIONS (3)
  - RENAL ARTERY STENOSIS [None]
  - RENAL ATROPHY [None]
  - RENAL FAILURE ACUTE [None]
